FAERS Safety Report 19292065 (Version 1)
Quarter: 2021Q2

REPORT INFORMATION
  Report Type: Spontaneous
  Country: DE (occurrence: DE)
  Receive Date: 20210524
  Receipt Date: 20210524
  Transmission Date: 20210717
  Serious: Yes (Other)
  Sender: FDA-Public Use
  Company Number: DE-ALIMERA SCIENCES INC.-DE-A16013-21-000103

PATIENT
  Age: 59 Year
  Sex: Male

DRUGS (2)
  1. ILUVIEN [Suspect]
     Active Substance: FLUOCINOLONE ACETONIDE
     Indication: MACULAR OEDEMA
  2. ILUVIEN [Suspect]
     Active Substance: FLUOCINOLONE ACETONIDE
     Indication: UVEITIS
     Dosage: 0.25 MICROGRAM, QD?RIGHT EYE
     Route: 031
     Dates: start: 20190508, end: 20210511

REACTIONS (4)
  - Diabetic retinal oedema [Unknown]
  - Device dislocation [Recovered/Resolved]
  - Corneal decompensation [Unknown]
  - Medical device removal [Recovered/Resolved]

NARRATIVE: CASE EVENT DATE: 20190508
